FAERS Safety Report 18601820 (Version 1)
Quarter: 2020Q4

REPORT INFORMATION
  Report Type: Spontaneous
  Country: FR (occurrence: FR)
  Receive Date: 20201210
  Receipt Date: 20201210
  Transmission Date: 20210114
  Serious: Yes (Hospitalization)
  Sender: FDA-Public Use
  Company Number: FR-CELGENEUS-FRA-20201201400

PATIENT
  Age: 86 Year
  Sex: Male

DRUGS (2)
  1. VAXIGRIPTETRA [Suspect]
     Active Substance: INFLUENZA VIRUS VACCINE QUADRIVALENT TYPE A+B
     Indication: INFLUENZA IMMUNISATION
     Route: 030
     Dates: start: 20201015
  2. REVLIMID [Suspect]
     Active Substance: LENALIDOMIDE
     Indication: PLASMA CELL MYELOMA
     Dosage: 10 MILLIGRAM
     Route: 048
     Dates: start: 201912

REACTIONS (1)
  - Macule [Recovering/Resolving]

NARRATIVE: CASE EVENT DATE: 20201016
